FAERS Safety Report 15361288 (Version 1)
Quarter: 2018Q3

REPORT INFORMATION
  Report Type: Spontaneous
  Country: FR (occurrence: FR)
  Receive Date: 20180907
  Receipt Date: 20180907
  Transmission Date: 20181010
  Serious: Yes (Other)
  Sender: FDA-Public Use
  Company Number: FR-MYLANLABS-2018M1065811

PATIENT
  Age: 58 Year
  Sex: Female

DRUGS (2)
  1. IMATINIB [Suspect]
     Active Substance: IMATINIB
     Indication: CHRONIC MYELOID LEUKAEMIA
     Dosage: 250 MG, UNK
     Route: 065
  2. IMATINIB [Suspect]
     Active Substance: IMATINIB
     Dosage: 400 MG, QD
     Route: 065
     Dates: start: 200102

REACTIONS (7)
  - Asthenia [Unknown]
  - Haematotoxicity [Unknown]
  - Upper respiratory tract infection [Unknown]
  - Hepatitis [Unknown]
  - Jaundice [Unknown]
  - Hepatic function abnormal [Unknown]
  - Cholestasis [Unknown]

NARRATIVE: CASE EVENT DATE: 200201
